FAERS Safety Report 10528786 (Version 1)
Quarter: 2014Q4

REPORT INFORMATION
  Report Type: Spontaneous
  Country: US (occurrence: US)
  Receive Date: 20141020
  Receipt Date: 20141020
  Transmission Date: 20150528
  Serious: No
  Sender: FDA-Public Use
  Company Number: US-ENDO PHARMACEUTICALS INC.-CARI20130014

PATIENT
  Age: 45 Year
  Sex: Female

DRUGS (1)
  1. CARISOPRODOL TABLETS 350MG [Suspect]
     Active Substance: CARISOPRODOL
     Indication: JUVENILE IDIOPATHIC ARTHRITIS
     Route: 048
     Dates: start: 2010

REACTIONS (3)
  - Activities of daily living impaired [Not Recovered/Not Resolved]
  - Impaired driving ability [Not Recovered/Not Resolved]
  - Feeling drunk [Not Recovered/Not Resolved]

NARRATIVE: CASE EVENT DATE: 201312
